FAERS Safety Report 8709881 (Version 3)
Quarter: 2012Q4

REPORT INFORMATION
  Report Type: 
  Country: JP (occurrence: JP)
  Receive Date: 20120806
  Receipt Date: 20121119
  Transmission Date: 20130627
  Serious: Yes (Other)
  Sender: FDA-Public Use
  Company Number: PHHY2010JP82545

PATIENT
  Age: 53 Year
  Sex: Female
  Weight: 62 kg

DRUGS (27)
  1. CLOZARIL [Suspect]
     Indication: SCHIZOPHRENIA
     Dosage: 12.5 mg, QD
     Route: 048
     Dates: start: 20101019, end: 20101019
  2. CLOZARIL [Suspect]
     Dosage: 25 mg, QD
     Route: 048
     Dates: start: 20101020, end: 20101022
  3. CLOZARIL [Suspect]
     Dosage: 50 mg, QD
     Route: 048
     Dates: start: 20101023, end: 20101101
  4. CLOZARIL [Suspect]
     Dosage: 75 mg, QD
     Route: 048
     Dates: start: 20101101, end: 20101105
  5. CLOZARIL [Suspect]
     Dosage: 100 mg, QD
     Route: 048
     Dates: start: 20101105, end: 20101108
  6. CLOZARIL [Suspect]
     Dosage: 125 mg, QD
     Route: 048
     Dates: start: 20101108, end: 20101112
  7. CLOZARIL [Suspect]
     Dosage: 150 mg, QD
     Route: 048
     Dates: start: 20101112, end: 20101116
  8. CLOZARIL [Suspect]
     Dosage: 175 mg, QD
     Route: 048
     Dates: start: 20101116, end: 20101119
  9. CLOZARIL [Suspect]
     Dosage: 200 mg, QD
     Route: 048
     Dates: start: 20101119, end: 20101123
  10. CLOZARIL [Suspect]
     Dosage: 250 mg, QD
     Route: 048
     Dates: start: 20101123, end: 20101126
  11. CLOZARIL [Suspect]
     Dosage: 200 mg, QD
     Route: 048
     Dates: start: 20101127, end: 20101129
  12. PURSENNID [Concomitant]
     Dosage: 12 mg, UNK
     Route: 048
  13. CHLORPROMAZINE [Concomitant]
     Route: 048
  14. HALOPERIDOL [Concomitant]
     Route: 048
  15. PERPHENAZINE [Concomitant]
  16. SULPIRIDE [Concomitant]
  17. THIORIDAZINE [Concomitant]
  18. CLOCAPRAMINE HYDROCHLORIDE [Concomitant]
  19. PIPAMPERONE [Concomitant]
  20. LEVOMEPROMAZINE HYDROCHLORIDE [Concomitant]
  21. RISPERIDONE [Concomitant]
  22. OLANZAPINE [Concomitant]
  23. ARIPIPRAZOLE [Concomitant]
  24. SILECE [Concomitant]
  25. MAGMITT KENEI [Concomitant]
  26. XALATAN [Concomitant]
  27. FLUMETHOLON [Concomitant]

REACTIONS (9)
  - Blood lactate dehydrogenase increased [Recovered/Resolved]
  - Blood pressure decreased [Unknown]
  - Hepatic function abnormal [Recovered/Resolved]
  - Aspartate aminotransferase increased [Recovered/Resolved]
  - Alanine aminotransferase increased [Recovered/Resolved]
  - Platelet count decreased [Unknown]
  - Eosinophil count increased [Recovered/Resolved]
  - Neutropenia [Recovered/Resolved]
  - White blood cell count decreased [Recovered/Resolved]
